FAERS Safety Report 5600034-5 (Version None)
Quarter: 2008Q1

REPORT INFORMATION
  Report Type: 
  Country: None (occurrence: None)
  Receive Date: 20080123
  Receipt Date: 20080114
  Transmission Date: 20080703
  Serious: Yes (Hospitalization)
  Sender: FDA-Public Use
  Company Number: AU-ASTRAZENECA-2008AP00438

PATIENT
  Age: 40 Year
  Sex: Female
  Weight: 91 kg

DRUGS (4)
  1. SEROQUEL [Suspect]
     Indication: ANXIETY
     Route: 048
  2. SEROQUEL [Suspect]
     Indication: BIPOLAR DISORDER
     Route: 048
  3. EFFEXOR [Concomitant]
  4. OXAZAPAM [Concomitant]

REACTIONS (2)
  - INTESTINAL FUNCTIONAL DISORDER [None]
  - WEIGHT INCREASED [None]
